FAERS Safety Report 8323768-0 (Version None)
Quarter: 2012Q2

REPORT INFORMATION
  Report Type: 
  Country: None (occurrence: None)
  Receive Date: 20120501
  Receipt Date: 20120419
  Transmission Date: 20120825
  Serious: Yes (Hospitalization, Other)
  Sender: FDA-Public Use
  Company Number: DK-NOVOPROD-335927

PATIENT
  Age: 57 Year
  Sex: Male
  Weight: 107 kg

DRUGS (6)
  1. ACETAMINOPHEN [Concomitant]
     Indication: PAIN
  2. VICTOZA [Suspect]
     Indication: TYPE 2 DIABETES MELLITUS
     Dosage: 0.6 MG
     Route: 058
     Dates: start: 20100816, end: 20110426
  3. VICTOZA [Suspect]
     Dosage: 1.8 MG
     Dates: start: 20110426
  4. METFORMIN ACTAVIS [Concomitant]
     Indication: TYPE 2 DIABETES MELLITUS
  5. SIMVASTATIN [Concomitant]
     Indication: HYPERLIPIDAEMIA
  6. VICTOZA [Suspect]
     Dosage: 1.2 MG
     Dates: start: 20110615, end: 20110830

REACTIONS (6)
  - ABDOMINAL PAIN UPPER [None]
  - DIZZINESS [None]
  - DYSPEPSIA [None]
  - PANCREATITIS [None]
  - HEADACHE [None]
  - ERUCTATION [None]
